FAERS Safety Report 15882542 (Version 6)
Quarter: 2020Q4

REPORT INFORMATION
  Report Type: Report from Study
  Country: FR (occurrence: FR)
  Receive Date: 20190129
  Receipt Date: 20201016
  Transmission Date: 20210113
  Serious: Yes (Hospitalization, Other)
  Sender: FDA-Public Use
  Company Number: FR-BRISTOL-MYERS SQUIBB COMPANY-BMS-2018-096330

PATIENT
  Age: 70 Year
  Sex: Male

DRUGS (4)
  1. HYDROCORTISONE. [Concomitant]
     Active Substance: HYDROCORTISONE
     Indication: PRODUCT USED FOR UNKNOWN INDICATION
     Dosage: 20MG-10MG-0
     Route: 065
  2. SOLU-MEDROL [Concomitant]
     Active Substance: METHYLPREDNISOLONE SODIUM SUCCINATE
     Indication: PRODUCT USED FOR UNKNOWN INDICATION
     Dosage: 40 MG, Q2WK
     Route: 065
  3. HYDRATION VITAMIN [Concomitant]
     Indication: PRODUCT USED FOR UNKNOWN INDICATION
     Dosage: 2 L, QD
     Route: 065
  4. NIVOLUMAB [Suspect]
     Active Substance: NIVOLUMAB
     Indication: RENAL CANCER
     Dosage: 240 MILLIGRAM, Q2WK
     Route: 042
     Dates: start: 20180511, end: 20181024

REACTIONS (13)
  - Demyelination [Unknown]
  - Joint swelling [Recovering/Resolving]
  - Confusional state [Recovered/Resolved]
  - Arthralgia [Recovering/Resolving]
  - Malignant neoplasm progression [Unknown]
  - Cerebral atrophy [Unknown]
  - Drug intolerance [Unknown]
  - General physical condition abnormal [Recovered/Resolved]
  - Asthenia [Recovered/Resolved]
  - Cerebral haemorrhage [Unknown]
  - Autonomic nervous system imbalance [Recovered/Resolved]
  - Decreased appetite [Recovering/Resolving]
  - Inflammation [Unknown]

NARRATIVE: CASE EVENT DATE: 20180926
